FAERS Safety Report 7658443-9 (Version None)
Quarter: 2011Q3

REPORT INFORMATION
  Report Type: 
  Country: None (occurrence: None)
  Receive Date: 20110802
  Receipt Date: 20110719
  Transmission Date: 20111222
  Serious: Yes (Other)
  Sender: FDA-Public Use
  Company Number: 2011AP001542

PATIENT
  Age: 77 Year
  Sex: Male

DRUGS (6)
  1. NIFEDIPINE [Concomitant]
  2. OMEPRAZOLE [Concomitant]
  3. RAMIPRIL [Concomitant]
  4. TERBINAFINE HCL [Suspect]
     Indication: TINEA PEDIS
     Dosage: 250 MG
     Dates: start: 20110614, end: 20110616
  5. FINASTERIDE [Concomitant]
  6. TAMSULOSIN HCL [Concomitant]

REACTIONS (3)
  - SKIN EXFOLIATION [None]
  - TOXIC EPIDERMAL NECROLYSIS [None]
  - PAIN IN EXTREMITY [None]
